FAERS Safety Report 20388755 (Version 1)
Quarter: 2022Q1

REPORT INFORMATION
  Report Type: Spontaneous
  Country: US (occurrence: US)
  Receive Date: 20220128
  Receipt Date: 20220128
  Transmission Date: 20220424
  Serious: No
  Sender: FDA-Public Use
  Company Number: US-ENDO PHARMACEUTICALS INC-2021-014025

PATIENT
  Sex: Female

DRUGS (2)
  1. QWO [Suspect]
     Active Substance: COLLAGENASE CLOSTRIDIUM HISTOLYTICUM-AAES
     Indication: Product used for unknown indication
     Dosage: 0.92 MG, UNKNOWN TREATMENT ONE)
     Route: 065
     Dates: start: 20211207
  2. QWO [Suspect]
     Active Substance: COLLAGENASE CLOSTRIDIUM HISTOLYTICUM-AAES
     Dosage: 0.92 MG, UNKNOWN (TREATMENT TWO)
     Route: 065
     Dates: start: 20211228

REACTIONS (7)
  - Paraesthesia [Unknown]
  - Burning sensation [Unknown]
  - Swelling [Not Recovered/Not Resolved]
  - Erythema [Recovering/Resolving]
  - Pain [Not Recovered/Not Resolved]
  - Contusion [Unknown]
  - Pruritus [Unknown]

NARRATIVE: CASE EVENT DATE: 20211201
